FAERS Safety Report 5253295-9 (Version None)
Quarter: 2007Q1

REPORT INFORMATION
  Report Type: 
  Country: None (occurrence: None)
  Receive Date: 20061201
  Receipt Date: 20060829
  Transmission Date: 20070707
  Serious: No
  Sender: FDA-Public Use
  Company Number: 2006PV020396

PATIENT
  Age: 65 Year
  Sex: Male
  Weight: 88.4514 kg

DRUGS (5)
  1. BYETTA [Suspect]
     Indication: DIABETES MELLITUS NON-INSULIN-DEPENDENT
     Dosage: 5 MCG;BID;SC
     Route: 058
     Dates: start: 20060801, end: 20060826
  2. METFORMIN HCL [Concomitant]
  3. AVANDIA [Concomitant]
  4. AMARYL [Concomitant]
  5. STARLIX [Concomitant]

REACTIONS (8)
  - ABDOMINAL PAIN UPPER [None]
  - ANOREXIA [None]
  - BLOOD GLUCOSE INCREASED [None]
  - DIARRHOEA [None]
  - FATIGUE [None]
  - FEELING ABNORMAL [None]
  - LACRIMATION INCREASED [None]
  - YAWNING [None]
